FAERS Safety Report 20987675 (Version 3)
Quarter: 2022Q3

REPORT INFORMATION
  Report Type: Spontaneous
  Country: BR (occurrence: BR)
  Receive Date: 20220621
  Receipt Date: 20220624
  Transmission Date: 20221027
  Serious: Yes (Other)
  Sender: FDA-Public Use
  Company Number: BR-NOVARTISPH-NVSC2022BR140868

PATIENT
  Sex: Male

DRUGS (1)
  1. TEGRETOL XR [Suspect]
     Active Substance: CARBAMAZEPINE
     Indication: Product used for unknown indication
     Dosage: UNK
     Route: 065

REACTIONS (2)
  - Epilepsy [Not Recovered/Not Resolved]
  - Product availability issue [Unknown]
